FAERS Safety Report 8615873-6 (Version None)
Quarter: 2012Q3

REPORT INFORMATION
  Report Type: 
  Country: None (occurrence: None)
  Receive Date: 20120823
  Receipt Date: 20120810
  Transmission Date: 20120928
  Serious: Yes (Other)
  Sender: FDA-Public Use
  Company Number: JP-ROCHE-1105042

PATIENT
  Sex: Female

DRUGS (33)
  1. ACTONEL [Concomitant]
     Route: 064
     Dates: start: 20080917, end: 20080923
  2. ROACTEMRA [Suspect]
     Route: 042
     Dates: start: 20100101, end: 20100205
  3. LIPITOR [Concomitant]
     Indication: HYPERLIPIDAEMIA
     Dosage: DOSAGE IS UNCERTAIN.
     Route: 048
     Dates: end: 20100301
  4. IRON SUCROSE [Concomitant]
     Indication: IRON DEFICIENCY ANAEMIA
     Route: 042
     Dates: start: 20081209, end: 20090106
  5. CANDESARTAN CILEXETIL [Concomitant]
     Dosage: DOSAGE : UNCERTAIN
     Route: 048
     Dates: end: 20100301
  6. LIPITOR [Concomitant]
     Route: 048
     Dates: end: 20100301
  7. ROACTEMRA [Suspect]
     Route: 042
     Dates: start: 20081021, end: 20090818
  8. ROACTEMRA [Suspect]
     Route: 042
     Dates: start: 20100402
  9. PREDNISOLONE [Concomitant]
     Route: 064
     Dates: start: 20081209, end: 20090105
  10. CALCIUM PHOSPHATE [Concomitant]
     Indication: PROPHYLAXIS
     Dosage: DRUG REPORTED AS : PYRIDOXAL CALCIUM PHOSPHATE
     Route: 048
  11. CALFINA [Concomitant]
     Indication: PROPHYLAXIS
     Route: 048
     Dates: start: 20090106
  12. FERROUS FUMARATE [Concomitant]
     Indication: IRON DEFICIENCY ANAEMIA
     Dosage: DRUG REPORTED AS : FERRUM
     Route: 048
     Dates: end: 20081208
  13. EPOETIN ALFA [Concomitant]
     Indication: NEPHROGENIC ANAEMIA
     Route: 058
     Dates: end: 20090106
  14. CANDESARTAN CILEXETIL [Concomitant]
     Indication: HYPERTENSION
     Dosage: DOSAGE IS UNCERTAIN.
     Route: 048
     Dates: end: 20100301
  15. CLINORIL [Concomitant]
     Indication: RHEUMATOID ARTHRITIS
     Route: 048
     Dates: end: 20081208
  16. LANSOPRAZOLE [Concomitant]
     Indication: PROPHYLAXIS
     Route: 048
  17. PRAVASTATIN SODIUM [Concomitant]
     Indication: HYPERLIPIDAEMIA
     Route: 048
  18. AZULFIDINE [Concomitant]
     Route: 048
     Dates: start: 20080701, end: 20090903
  19. LOPERAMIDE HYDROCHLORIDE [Concomitant]
     Indication: IRRITABLE BOWEL SYNDROME
     Route: 048
     Dates: end: 20080915
  20. ROACTEMRA [Suspect]
     Indication: RHEUMATOID ARTHRITIS
     Route: 042
     Dates: start: 20080902, end: 20080929
  21. PREDNISOLONE [Concomitant]
     Indication: RHEUMATOID ARTHRITIS
     Route: 048
     Dates: end: 20081208
  22. PREDNISOLONE [Concomitant]
     Route: 064
     Dates: end: 20090202
  23. PREDNISOLONE [Concomitant]
     Route: 064
     Dates: start: 20090203
  24. FERROUS CITRATE [Concomitant]
     Indication: IRON DEFICIENCY ANAEMIA
     Route: 048
     Dates: start: 20081209
  25. LOSARTAN POTASSIUM [Concomitant]
     Indication: HYPERTENSION
     Route: 048
     Dates: end: 20080925
  26. CEFAZOLIN SODIUM [Concomitant]
     Indication: IRRITABLE BOWEL SYNDROME
     Route: 048
     Dates: end: 20080915
  27. FERROUS CITRATE [Concomitant]
     Route: 048
     Dates: start: 20081209
  28. ROACTEMRA [Suspect]
     Route: 042
     Dates: start: 20090915
  29. NEOISCOTIN [Concomitant]
     Indication: RHEUMATOID ARTHRITIS
     Dosage: THE MOON AND TREE
     Route: 048
  30. LASIX [Concomitant]
     Indication: HYPERTENSION
     Route: 048
  31. ACTONEL [Concomitant]
     Indication: PROPHYLAXIS
     Route: 048
     Dates: start: 20080928
  32. AZULFIDINE [Concomitant]
     Indication: RHEUMATOID ARTHRITIS
     Route: 048
     Dates: end: 20080610
  33. TOYOFAROL [Concomitant]
     Indication: PROPHYLAXIS
     Route: 048
     Dates: end: 20090105

REACTIONS (2)
  - PREGNANCY [None]
  - UTERINE DILATION AND EVACUATION [None]
